FAERS Safety Report 5875877-3 (Version None)
Quarter: 2008Q3

REPORT INFORMATION
  Report Type: 
  Country: None (occurrence: None)
  Receive Date: 20080905
  Receipt Date: 20080905
  Transmission Date: 20090109
  Serious: Yes (Life-Threatening, Hospitalization)
  Sender: FDA-Public Use
  Company Number: 8034171

PATIENT
  Age: 43 Year
  Sex: Female

DRUGS (3)
  1. PREDNISOLONE [Suspect]
     Indication: UVEITIS
  2. MYCOPHENOLATE MOFETIL [Suspect]
     Indication: UVEITIS
     Dates: end: 20060101
  3. TACROLIMUS [Suspect]
     Indication: UVEITIS
     Dates: end: 20060101

REACTIONS (31)
  - ANOREXIA [None]
  - BLISTER [None]
  - CACHEXIA [None]
  - CARDIOGENIC SHOCK [None]
  - CARDIOMEGALY [None]
  - CELLULITIS [None]
  - DISEASE RECURRENCE [None]
  - ERYTHEMA [None]
  - FEMUR FRACTURE [None]
  - FIBULA FRACTURE [None]
  - HAEMORRHAGE [None]
  - HYPERTENSION [None]
  - INFLAMMATION [None]
  - LEFT VENTRICULAR DYSFUNCTION [None]
  - LOWER RESPIRATORY TRACT INFECTION [None]
  - MITRAL VALVE INCOMPETENCE [None]
  - MULTIPLE-DRUG RESISTANCE [None]
  - MYCOBACTERIAL INFECTION [None]
  - NAUSEA [None]
  - NECROSIS [None]
  - OEDEMA [None]
  - PLEURAL EFFUSION [None]
  - PNEUMONIA [None]
  - POLYCYTHAEMIA [None]
  - PULSE ABSENT [None]
  - SKIN DISCOLOURATION [None]
  - SPINAL COMPRESSION FRACTURE [None]
  - SUBCUTANEOUS NODULE [None]
  - URINARY TRACT INFECTION [None]
  - WEIGHT DECREASED [None]
  - WHITE BLOOD CELL COUNT INCREASED [None]
